FAERS Safety Report 16837276 (Version 2)
Quarter: 2019Q4

REPORT INFORMATION
  Report Type: Spontaneous
  Country: FR (occurrence: FR)
  Receive Date: 20190923
  Receipt Date: 20191010
  Transmission Date: 20200122
  Serious: Yes (Other)
  Sender: FDA-Public Use
  Company Number: FR-US-PROVELL PHARMACEUTICALS LLC-9045218

PATIENT
  Age: 68 Year
  Sex: Female

DRUGS (5)
  1. LEVOTHYROX [Suspect]
     Active Substance: LEVOTHYROXINE
     Dosage: 75 UNSPECIFIED UNITS
  2. LEVOTHYROX [Suspect]
     Active Substance: LEVOTHYROXINE
     Dosage: 50+12.5 UNSPECIFIED UNITS
  3. INEXIUM                            /01479302/ [Concomitant]
     Active Substance: ESOMEPRAZOLE MAGNESIUM
     Indication: DYSPEPSIA
  4. LEVOTHYROX [Suspect]
     Active Substance: LEVOTHYROXINE
     Dosage: LEVOTHYROX 75 MCG PLUS HALF TABLET OF LEVOTHYROX 25 MCG
     Dates: end: 2017
  5. LEVOTHYROX [Suspect]
     Active Substance: LEVOTHYROXINE
     Indication: THYROID DISORDER
     Dates: start: 1990

REACTIONS (31)
  - Amyotrophy [Unknown]
  - Weight decreased [Unknown]
  - Hepatic steatosis [Recovering/Resolving]
  - Vertigo [Unknown]
  - Pain in extremity [Unknown]
  - Intervertebral disc degeneration [Unknown]
  - Dizziness [Unknown]
  - Jaundice [Unknown]
  - Abdominal pain upper [Unknown]
  - Renal cyst [Unknown]
  - Hypokinesia [Unknown]
  - Thyroxine free increased [Recovered/Resolved]
  - Hepatomegaly [Unknown]
  - Swelling [Unknown]
  - Loss of personal independence in daily activities [Unknown]
  - Blood thyroid stimulating hormone increased [Recovered/Resolved]
  - Abdominal pain [Unknown]
  - Palpitations [Unknown]
  - Visual impairment [Recovered/Resolved]
  - Extrapyramidal disorder [Unknown]
  - Hyperhidrosis [Unknown]
  - Fall [Unknown]
  - Reaction to excipient [Unknown]
  - Liver disorder [Unknown]
  - Joint swelling [Unknown]
  - Dyspnoea [Unknown]
  - Malaise [Unknown]
  - Fatigue [Unknown]
  - Alopecia [Unknown]
  - Lactose intolerance [Unknown]
  - Insomnia [Unknown]

NARRATIVE: CASE EVENT DATE: 200311
